FAERS Safety Report 7746908-0 (Version None)
Quarter: 2011Q3

REPORT INFORMATION
  Report Type: 
  Country: None (occurrence: None)
  Receive Date: 20110913
  Receipt Date: 20110902
  Transmission Date: 20111222
  Serious: Yes (Other)
  Sender: FDA-Public Use
  Company Number: DE-JNJFOC-20110900698

PATIENT
  Sex: Male
  Weight: 70 kg

DRUGS (4)
  1. XARELTO [Suspect]
     Indication: KNEE ARTHROPLASTY
     Route: 048
  2. METOPROLOL SUCCINATE [Concomitant]
     Dates: start: 20060101
  3. RAMIPRIL [Concomitant]
     Dates: start: 20060101
  4. EZETIMIBE [Concomitant]

REACTIONS (7)
  - NERVOUS SYSTEM DISORDER [None]
  - ATRIAL FIBRILLATION [None]
  - INSOMNIA [None]
  - RESTLESSNESS [None]
  - HALLUCINATION [None]
  - TACHYCARDIA [None]
  - NIGHTMARE [None]
